FAERS Safety Report 8555423 (Version 3)
Quarter: 2013Q1

REPORT INFORMATION
  Report Type: Spontaneous
  Country: IT (occurrence: None)
  Receive Date: 20120503
  Receipt Date: 20121218
  Transmission Date: 20140127
  Serious: Yes (Death, Hospitalization)
  Sender: FDA-Public Use
  Company Number: IT-007931

PATIENT
  Age: 67 Year
  Sex: Female
  Weight: 58.8 kg

DRUGS (1)
  1. CHLORAMBUCIL [Suspect]
     Dosage: (UNKNOWN, DAYS 1-7 EVERY 28 DAYS), ORAL
     Route: 048
     Dates: start: 20091020

REACTIONS (3)
  - SEPTIC SHOCK [None]
  - RESPIRATORY FAILURE [None]
  - PNEUMONIA LEGIONELLA [None]
